FAERS Safety Report 7296471-6 (Version None)
Quarter: 2011Q1

REPORT INFORMATION
  Report Type: 
  Country: None (occurrence: None)
  Receive Date: 20110216
  Receipt Date: 20110203
  Transmission Date: 20110831
  Serious: Yes (Hospitalization, Other)
  Sender: FDA-Public Use
  Company Number: PHHY2011ES09265

PATIENT
  Age: 63 Year
  Sex: Male

DRUGS (1)
  1. WARFARIN SODIUM [Suspect]
     Indication: ANTICOAGULANT THERAPY
     Dosage: 5MG EVERY 24 HOURS

REACTIONS (15)
  - ABDOMINAL PAIN [None]
  - HYPERTENSION [None]
  - FLATULENCE [None]
  - PERITONEAL HAEMORRHAGE [None]
  - PROTHROMBIN TIME PROLONGED [None]
  - INTESTINAL HAEMATOMA [None]
  - WHITE BLOOD CELL COUNT INCREASED [None]
  - GASTROINTESTINAL DISORDER [None]
  - NAUSEA [None]
  - ACTIVATED PARTIAL THROMBOPLASTIN TIME PROLONGED [None]
  - INTERNATIONAL NORMALISED RATIO INCREASED [None]
  - INTESTINAL ISCHAEMIA [None]
  - ABDOMINAL DISTENSION [None]
  - CONSTIPATION [None]
  - INTESTINAL OBSTRUCTION [None]
